FAERS Safety Report 5090448-7 (Version None)
Quarter: 2006Q3

REPORT INFORMATION
  Report Type: 
  Country: None (occurrence: None)
  Receive Date: 20060828
  Receipt Date: 20060505
  Transmission Date: 20061208
  Serious: No
  Sender: FDA-Public Use
  Company Number: US-GLAXOSMITHKLINE-A0604511A

PATIENT
  Age: 46 Year
  Sex: Female
  Weight: 56.8 kg

DRUGS (3)
  1. WELLBUTRIN XL [Suspect]
     Indication: DEPRESSION
     Dosage: 300MG PER DAY
     Route: 048
     Dates: start: 20060331, end: 20060428
  2. ACIPHEX [Concomitant]
  3. DETROL LA [Concomitant]

REACTIONS (3)
  - ANXIETY [None]
  - DYSPNOEA EXERTIONAL [None]
  - PANIC ATTACK [None]
